FAERS Safety Report 9027897 (Version 1)
Quarter: 2013Q1

REPORT INFORMATION
  Report Type: Report from Study
  Country: NL (occurrence: NL)
  Receive Date: 20130124
  Receipt Date: 20130124
  Transmission Date: 20140127
  Serious: Yes (Hospitalization)
  Sender: FDA-Public Use
  Company Number: NL-JNJFOC-20130111225

PATIENT
  Age: 11 Year
  Sex: Female
  Weight: 35.8 kg

DRUGS (4)
  1. REMICADE [Suspect]
     Indication: CROHN^S DISEASE
     Route: 042
     Dates: start: 20120424
  2. REMICADE [Suspect]
     Indication: CROHN^S DISEASE
     Route: 042
     Dates: start: 20120605, end: 20120605
  3. FOLIC ACID [Concomitant]
  4. METHOTREXATE [Concomitant]

REACTIONS (1)
  - Ileal stenosis [Recovered/Resolved]
